FAERS Safety Report 12681895 (Version 6)
Quarter: 2016Q4

REPORT INFORMATION
  Report Type: Report from Study
  Country: KR (occurrence: KR)
  Receive Date: 20160824
  Receipt Date: 20161107
  Transmission Date: 20170207
  Serious: Yes (Hospitalization)
  Sender: FDA-Public Use
  Company Number: DE-ACTELION-A-NJ2016-140118

PATIENT
  Age: 51 Year
  Sex: Female

DRUGS (2)
  1. VENTAVIS [Suspect]
     Active Substance: ILOPROST
     Dosage: 0.5 AMPLE 2-4 TIMES A DAY
     Route: 055
     Dates: end: 20161019
  2. VENTAVIS [Suspect]
     Active Substance: ILOPROST
     Indication: PULMONARY ARTERIAL HYPERTENSION
     Dosage: 0.5 AMPLE ONE TIME AND 6 TIMES A DAY
     Route: 055
     Dates: start: 20160720

REACTIONS (19)
  - Chest discomfort [Recovered/Resolved]
  - Asthenia [Unknown]
  - Oxygen saturation decreased [Recovering/Resolving]
  - Lip oedema [Not Recovered/Not Resolved]
  - Decreased appetite [Recovering/Resolving]
  - Myalgia [Unknown]
  - Cough [Recovering/Resolving]
  - Haemoptysis [Recovered/Resolved]
  - Cough [Not Recovered/Not Resolved]
  - Oropharyngeal discomfort [Unknown]
  - Product use issue [Unknown]
  - Increased viscosity of bronchial secretion [Unknown]
  - Bronchitis [Recovering/Resolving]
  - Oropharyngeal pain [Not Recovered/Not Resolved]
  - Sputum increased [Not Recovered/Not Resolved]
  - Pneumonia [Recovered/Resolved]
  - Cough [Recovered/Resolved]
  - Dyspnoea [Recovering/Resolving]
  - Product use issue [Recovered/Resolved]

NARRATIVE: CASE EVENT DATE: 201607
